FAERS Safety Report 7698682-4 (Version None)
Quarter: 2011Q3

REPORT INFORMATION
  Report Type: 
  Country: None (occurrence: None)
  Receive Date: 20110819
  Receipt Date: 20110816
  Transmission Date: 20111222
  Serious: Yes (Death, Other)
  Sender: FDA-Public Use
  Company Number: PHHY2011FR73911

PATIENT
  Age: 25 Year
  Sex: Female

DRUGS (5)
  1. ZOPICLONE [Concomitant]
     Dosage: UNK UKN, UNK
  2. OLANZAPINE [Concomitant]
     Dosage: UNK UKN, UNK
  3. METHADONE HYDROCHLORIDE [Suspect]
     Indication: PAIN
     Dosage: 45 MG/DAY
  4. FLUOXETINE [Concomitant]
     Dosage: UNK UKN, UNK
  5. CYAMEMAZINE [Concomitant]
     Dosage: UNK UKN, UNK

REACTIONS (2)
  - ELECTROCARDIOGRAM QT PROLONGED [None]
  - SUDDEN DEATH [None]
